FAERS Safety Report 5863618-5 (Version None)
Quarter: 2008Q3

REPORT INFORMATION
  Report Type: 
  Country: None (occurrence: None)
  Receive Date: 20080828
  Receipt Date: 20080820
  Transmission Date: 20090109
  Serious: Yes (Hospitalization)
  Sender: FDA-Public Use
  Company Number: US-ELI_LILLY_AND_COMPANY-US200808004874

PATIENT
  Sex: Female
  Weight: 131.52 kg

DRUGS (9)
  1. BYETTA [Suspect]
     Indication: TYPE 2 DIABETES MELLITUS
     Dosage: 5 UG, 2/D
     Route: 058
     Dates: start: 20070331, end: 20070429
  2. BYETTA [Suspect]
     Dosage: 10 UG, 2/D
     Route: 058
     Dates: start: 20070101, end: 20080701
  3. LABETALOL HCL [Concomitant]
     Dosage: 100 MG, 2/D
  4. DYNACIRC [Concomitant]
     Dosage: UNK, DAILY (1/D)
  5. CLONIDINE [Concomitant]
     Dosage: UNK, 2/D
  6. HYDROCHLOROTHIAZIDE [Concomitant]
     Dosage: UNK, DAILY (1/D)
  7. LEVOTHYROXINE [Concomitant]
     Dosage: UNK, DAILY (1/D)
  8. HYDRALAZINE HCL [Concomitant]
     Dosage: UNK, 2/D
  9. GLIMEPIRIDE [Concomitant]
     Dosage: UNK, DAILY (1/D)

REACTIONS (4)
  - ABDOMINAL PAIN UPPER [None]
  - SCAR [None]
  - UMBILICAL HERNIA [None]
  - WEIGHT DECREASED [None]
